FAERS Safety Report 16208659 (Version 1)
Quarter: 2019Q2

REPORT INFORMATION
  Report Type: Spontaneous
  Country: CH (occurrence: CH)
  Receive Date: 20190417
  Receipt Date: 20190417
  Transmission Date: 20190711
  Serious: Yes (Other)
  Sender: FDA-Public Use
  Company Number: CH-AMNEAL PHARMACEUTICALS-2019AMN00458

PATIENT
  Age: 61 Year
  Sex: Male

DRUGS (3)
  1. TEMOZOLOMIDE. [Suspect]
     Active Substance: TEMOZOLOMIDE
     Dosage: UNK (0.0152 MG/ML, INCREASING THE DOSE OVER 4 HOURS TO A CUMULATIVE DOSE OF 380 MG)
     Route: 042
  2. TEMOZOLOMIDE. [Suspect]
     Active Substance: TEMOZOLOMIDE
     Indication: UVEAL MELANOMA
     Dosage: UNK
     Route: 065
  3. TEMOZOLOMIDE. [Suspect]
     Active Substance: TEMOZOLOMIDE
     Dosage: UNK, (5 MG, GOING UP EVERY 30 MINUTES TO 360 MG CUMULATIVE)
     Route: 048

REACTIONS (1)
  - Drug reaction with eosinophilia and systemic symptoms [Recovered/Resolved]
